FAERS Safety Report 4695136-4 (Version None)
Quarter: 2005Q2

REPORT INFORMATION
  Report Type: 
  Country: None (occurrence: None)
  Receive Date: 20050614
  Receipt Date: 20050224
  Transmission Date: 20051028
  Serious: No
  Sender: FDA-Public Use
  Company Number: USA050188999

PATIENT
  Age: 60 Year
  Sex: Male

DRUGS (9)
  1. CIALIS [Suspect]
     Dosage: 20 MG
     Dates: start: 20050110
  2. ATENOLOL [Concomitant]
  3. ZOCOR (SIMVASTATIN RATIOPHARM) [Concomitant]
  4. ASPIRIN [Concomitant]
  5. VITAMINS NOS [Concomitant]
  6. NEXIUM [Concomitant]
  7. PROTEGRA [Concomitant]
  8. TYLENOL  /SCH/ (PARACETAMOL) [Concomitant]
  9. FOLTX [Concomitant]

REACTIONS (4)
  - HYPERSENSITIVITY [None]
  - SPEECH DISORDER [None]
  - THERAPEUTIC RESPONSE DECREASED [None]
  - THROAT TIGHTNESS [None]
